FAERS Safety Report 6342972-4 (Version None)
Quarter: 2009Q3

REPORT INFORMATION
  Report Type: 
  Country: None (occurrence: None)
  Receive Date: 20090908
  Receipt Date: 20090831
  Transmission Date: 20100115
  Serious: Yes (Hospitalization, Other)
  Sender: FDA-Public Use
  Company Number: US-PFIZER INC-2005079986

PATIENT
  Sex: Female

DRUGS (15)
  1. PROVERA [Suspect]
     Indication: HORMONE REPLACEMENT THERAPY
     Dosage: 10 MG, UNK
     Route: 048
     Dates: start: 19880321, end: 19890401
  2. PROVERA [Suspect]
     Dosage: 2.5 MG, UNK
     Route: 048
     Dates: start: 19890401, end: 19891030
  3. PROVERA [Suspect]
     Dosage: 5 MG, UNK
     Route: 048
     Dates: start: 19891030, end: 19930429
  4. MEDROXYPROGESTERONE [Suspect]
     Indication: HORMONE REPLACEMENT THERAPY
     Dosage: UNK
     Route: 048
     Dates: start: 19890821
  5. MEDROXYPROGESTERONE [Suspect]
     Dosage: 10 MG, UNK
     Route: 048
     Dates: start: 19930429, end: 19940404
  6. MEDROXYPROGESTERONE [Suspect]
     Dosage: 5 MG, UNK
     Route: 048
     Dates: start: 19940518, end: 19960229
  7. OGEN [Suspect]
     Indication: HORMONE REPLACEMENT THERAPY
     Dosage: 0.625 MG, UNK
     Route: 048
     Dates: start: 19911130, end: 19911227
  8. MEDROXYPROGESTERONE [Suspect]
     Indication: HORMONE REPLACEMENT THERAPY
     Dosage: UNK
     Dates: start: 19890821
  9. PREMARIN [Suspect]
     Indication: HORMONE REPLACEMENT THERAPY
     Dosage: 0.625 MG, UNK
     Dates: start: 19880321, end: 19911230
  10. PREMARIN [Suspect]
     Dosage: 0.625 MG, UNK
     Dates: start: 19920212, end: 19950531
  11. PREMARIN [Suspect]
     Dosage: 0.625 MG, UNK
     Dates: start: 19950823, end: 19981003
  12. PREMARIN [Suspect]
     Dosage: 1.25 MG, UNK
     Dates: start: 19911230, end: 19920212
  13. ESTRADERM [Suspect]
     Indication: HORMONE REPLACEMENT THERAPY
     Dosage: 0.05, UNK
     Route: 062
     Dates: start: 19890317, end: 19890401
  14. PREMPRO [Suspect]
     Indication: HORMONE REPLACEMENT THERAPY
     Dosage: 0.625/2.5 MG, UNK
     Dates: start: 19950531, end: 19950823
  15. PREMPRO [Suspect]
     Dosage: 0.625/5 MG, UNK
     Dates: start: 19981228, end: 19991221

REACTIONS (1)
  - BREAST CANCER METASTATIC [None]
